FAERS Safety Report 12350271 (Version 6)
Quarter: 2017Q1

REPORT INFORMATION
  Report Type: Spontaneous
  Country: US (occurrence: US)
  Receive Date: 20160510
  Receipt Date: 20170116
  Transmission Date: 20170428
  Serious: Yes (Congenital Anomaly, Other)
  Sender: FDA-Public Use
  Company Number: PHEH2016US011077

PATIENT
  Sex: Female

DRUGS (3)
  1. ONDANSETRON [Suspect]
     Active Substance: ONDANSETRON
     Indication: FOETAL EXPOSURE DURING PREGNANCY
     Dosage: MOTHER DOSE: 8 MG, FOUR TIMES A DAY (QID)
     Route: 064
  2. ZOFRAN [Suspect]
     Active Substance: ONDANSETRON HYDROCHLORIDE
     Indication: FOETAL EXPOSURE DURING PREGNANCY
     Route: 064
  3. ZOFRAN [Suspect]
     Active Substance: ONDANSETRON HYDROCHLORIDE
     Indication: FOETAL EXPOSURE DURING PREGNANCY
     Dosage: MOTHER^S DOSE: 4 MG, PER DAY (QD)
     Route: 064

REACTIONS (22)
  - Cardiac murmur [Unknown]
  - Hypokinesia [Unknown]
  - Bronchitis [Unknown]
  - Pharyngitis [Unknown]
  - Atrial septal defect [Unknown]
  - Heart disease congenital [Unknown]
  - Developmental delay [Unknown]
  - Conjunctivitis bacterial [Unknown]
  - Influenza [Unknown]
  - Pain [Unknown]
  - Anxiety [Unknown]
  - Left-to-right cardiac shunt [Unknown]
  - Respiratory tract infection [Unknown]
  - Viral infection [Unknown]
  - Congenital anomaly [Unknown]
  - Anhedonia [Unknown]
  - Respiratory distress [Unknown]
  - Injury [Unknown]
  - Tricuspid valve incompetence [Unknown]
  - Pulmonary valve stenosis [Unknown]
  - Pulmonary artery stenosis [Unknown]
  - Foetal exposure during pregnancy [Unknown]
